FAERS Safety Report 5530332-5 (Version None)
Quarter: 2007Q4

REPORT INFORMATION
  Report Type: 
  Country: None (occurrence: None)
  Receive Date: 20071130
  Receipt Date: 20071116
  Transmission Date: 20080405
  Serious: No
  Sender: FDA-Public Use
  Company Number: A0681139A

PATIENT
  Age: 38 Year
  Sex: Female
  Weight: 50 kg

DRUGS (2)
  1. AMOXICILLIN + CLAVULANATE POTASSIUM [Suspect]
     Dosage: 875MG THREE TIMES PER DAY
     Route: 048
     Dates: start: 20070801
  2. PREDNISONE TAB [Concomitant]

REACTIONS (5)
  - ABDOMINAL PAIN [None]
  - MALAISE [None]
  - PAIN [None]
  - PAIN IN EXTREMITY [None]
  - TENDON PAIN [None]
